FAERS Safety Report 16133723 (Version 4)
Quarter: 2020Q3

REPORT INFORMATION
  Report Type: Spontaneous
  Country: IT (occurrence: IT)
  Receive Date: 20190329
  Receipt Date: 20200923
  Transmission Date: 20201105
  Serious: No
  Sender: FDA-Public Use
  Company Number: IT-JNJFOC-20190232886

PATIENT
  Age: 16 Year
  Sex: Female

DRUGS (5)
  1. RAMIPRIL. [Suspect]
     Active Substance: RAMIPRIL
     Indication: DRUG ABUSE
     Route: 048
     Dates: start: 20181104, end: 20181104
  2. ZYRTEC [Suspect]
     Active Substance: CETIRIZINE HYDROCHLORIDE
     Indication: DRUG ABUSE
     Route: 048
     Dates: start: 20181104, end: 20181104
  3. HYDROCHLOROTHIAZIDE. [Suspect]
     Active Substance: HYDROCHLOROTHIAZIDE
     Indication: DRUG ABUSE
     Route: 048
     Dates: start: 20181104, end: 20181104
  4. ETORICOXIB. [Suspect]
     Active Substance: ETORICOXIB
     Indication: DRUG ABUSE
     Route: 048
     Dates: start: 20181104, end: 20181104
  5. LASIX [Suspect]
     Active Substance: FUROSEMIDE
     Indication: DRUG ABUSE
     Route: 048
     Dates: start: 20181104, end: 20181104

REACTIONS (2)
  - Presyncope [Recovering/Resolving]
  - Drug abuse [Recovering/Resolving]

NARRATIVE: CASE EVENT DATE: 20181104
